FAERS Safety Report 4862868-4 (Version None)
Quarter: 2005Q4

REPORT INFORMATION
  Report Type: 
  Country: None (occurrence: None)
  Receive Date: 20051221
  Receipt Date: 20051209
  Transmission Date: 20060501
  Serious: Yes (Other)
  Sender: FDA-Public Use
  Company Number: 2005UW18715

PATIENT
  Age: 64 Year
  Sex: Male
  Weight: 79.5 kg

DRUGS (3)
  1. CRESTOR [Suspect]
     Indication: BLOOD CHOLESTEROL INCREASED
     Route: 048
     Dates: end: 20051101
  2. ZOCOR [Concomitant]
  3. LIPITOR [Concomitant]

REACTIONS (5)
  - BURNING SENSATION [None]
  - CLUBBING [None]
  - HYPOAESTHESIA [None]
  - SKIN CHAPPED [None]
  - SKIN ULCER [None]
